FAERS Safety Report 26041486 (Version 1)
Quarter: 2025Q4

REPORT INFORMATION
  Report Type: Spontaneous
  Country: None (occurrence: None)
  Receive Date: 20251113
  Receipt Date: 20251113
  Transmission Date: 20260117
  Serious: Yes (Hospitalization, Other)
  Sender: ORGANON
  Company Number: BR-ORGANON-O2511BRA000386

PATIENT
  Age: 45 Year
  Sex: Female
  Weight: 75 kg

DRUGS (12)
  1. ETONOGESTREL [Suspect]
     Active Substance: ETONOGESTREL
     Indication: Contraception
     Dosage: 1 IMPLANT, IN LEFT ARM
  2. BEROTEC [Concomitant]
     Active Substance: FENOTEROL HYDROBROMIDE
     Indication: Asthma
  3. FERROUS SULFATE [Concomitant]
     Active Substance: FERROUS SULFATE
     Dosage: TAKE 1 TABLET TWICE DAILY
  4. CALCIUM CARBONATE [Concomitant]
     Active Substance: CALCIUM CARBONATE
     Dosage: TAKE 1 TABLET ONCE DAILY
  5. ACETAMINOPHEN [Concomitant]
     Active Substance: ACETAMINOPHEN
     Indication: Pain
     Dosage: TAKE 1 TABLET EVERY 6 HOURS IF IN PAIN
  6. AMOXICILLIN [Concomitant]
     Active Substance: AMOXICILLIN
     Dosage: TAKE 1 CAPSULE EVERY 8 HOURS FOR 7 DAYS
  7. UTROGESTAN [Concomitant]
     Active Substance: PROGESTERONE
     Dosage: TAKE 1 CAPSULE ONCE DAILY, OR APPLY 1 CAPSULE VAGINALLY ONCE DAILY
  8. ASPIRIN [Concomitant]
     Active Substance: ASPIRIN
     Dosage: 1 TABLET AT LUNCH
  9. FOLIC ACID [Concomitant]
     Active Substance: FOLIC ACID
     Dosage: AT A DOSE OF 40 DROPS ONCE A DAY
  10. AMLODIPINE [Concomitant]
     Active Substance: AMLODIPINE BESYLATE
     Dosage: UNK, Q12H
  11. AMLODIPINE BESYLATE [Concomitant]
     Active Substance: AMLODIPINE BESYLATE
     Dosage: 2 TABLETS PER DAY
  12. ALENIA [Concomitant]
     Indication: Asthma

REACTIONS (8)
  - Tension headache [Unknown]
  - Vaginal haemorrhage [Unknown]
  - Pregnancy with implant contraceptive [Recovered/Resolved]
  - Unintended pregnancy [Recovered/Resolved]
  - Tremor [Unknown]
  - Maternal exposure during breast feeding [Recovered/Resolved]
  - Product use issue [Unknown]
  - Inappropriate schedule of product administration [Unknown]

NARRATIVE: CASE EVENT DATE: 20191011
